FAERS Safety Report 17269385 (Version 1)
Quarter: 2020Q1

REPORT INFORMATION
  Report Type: Spontaneous
  Country: CA (occurrence: CA)
  Receive Date: 20200114
  Receipt Date: 20200114
  Transmission Date: 20200409
  Serious: Yes (Other)
  Sender: FDA-Public Use
  Company Number: CA-VIIV HEALTHCARE LIMITED-CA2019GSK129219

PATIENT
  Age: 43 Year
  Sex: Female

DRUGS (6)
  1. VALPROIC ACID. [Interacting]
     Active Substance: VALPROIC ACID
     Indication: SEIZURE
     Dosage: 250 MG, 1D
  2. LAMIVUDINE. [Concomitant]
     Active Substance: LAMIVUDINE
     Indication: HIV INFECTION
     Dosage: UNK
  3. ABACAVIR. [Concomitant]
     Active Substance: ABACAVIR
     Indication: HIV INFECTION
     Dosage: UNK (CAPSULE)
  4. VALPROIC ACID. [Interacting]
     Active Substance: VALPROIC ACID
     Indication: CEREBROVASCULAR ACCIDENT
     Dosage: 1250 MG, 1D
  5. EFAVIRENZ. [Suspect]
     Active Substance: EFAVIRENZ
     Indication: HIV INFECTION
     Dosage: UNK
  6. DOLUTEGRAVIR [Suspect]
     Active Substance: DOLUTEGRAVIR
     Indication: HIV INFECTION
     Dosage: 50 MG, 1D
     Dates: start: 201810

REACTIONS (5)
  - Drug level below therapeutic [Unknown]
  - Drug interaction [Unknown]
  - Seizure [Unknown]
  - Anticonvulsant drug level below therapeutic [Unknown]
  - Antiviral drug level below therapeutic [Unknown]
